FAERS Safety Report 18573138 (Version 2)
Quarter: 2021Q1

REPORT INFORMATION
  Report Type: Spontaneous
  Country: DE (occurrence: DE)
  Receive Date: 20201203
  Receipt Date: 20210127
  Transmission Date: 20210419
  Serious: Yes (Hospitalization)
  Sender: FDA-Public Use
  Company Number: DE-SUN PHARMACEUTICAL INDUSTRIES LTD-2020RR-269271

PATIENT
  Sex: Male

DRUGS (5)
  1. OXALIPLATIN SUN 5 MG/ML KONZENTRAT ZUR HERSTELLUNG EINER [Suspect]
     Active Substance: OXALIPLATIN
     Indication: PRODUCT USED FOR UNKNOWN INDICATION
     Dosage: IN 500 ML  GLUCOSE 5% (250 ML/H)ALLE 2 WOCHEN TEILWEISE UBER MONATE
     Route: 042
  2. DEXAMETHASONE 8 MG [Concomitant]
     Indication: CHEMOTHERAPY SIDE EFFECT PROPHYLAXIS
     Dosage: PRAMEDIKATION 30 MIN. VOR BEGINN DER CHEMOTHERAPIE ; IN TOTAL
     Route: 065
  3. FOLINSAURE [Concomitant]
     Active Substance: LEUCOVORIN
     Indication: CHEMOTHERAPY SIDE EFFECT PROPHYLAXIS
     Dosage: PRAMEDIKATION 30 MIN. VOR BEGINN DER CHEMOTHERAPIE ()
     Route: 065
  4. GRANISETRON [Concomitant]
     Active Substance: GRANISETRON
     Indication: CHEMOTHERAPY SIDE EFFECT PROPHYLAXIS
     Dosage: PRAMEDIKATION 30 MIN. VOR BEGINN DER CHEMOTHERAPIE ; IN TOTAL
     Route: 065
  5. 5?FU [Concomitant]
     Active Substance: FLUOROURACIL
     Indication: PRODUCT USED FOR UNKNOWN INDICATION
     Dosage: UNK
     Route: 065

REACTIONS (2)
  - Hypersensitivity [Unknown]
  - Product impurity [Unknown]

NARRATIVE: CASE EVENT DATE: 2020
